FAERS Safety Report 5591356-5 (Version None)
Quarter: 2008Q1

REPORT INFORMATION
  Report Type: 
  Country: None (occurrence: None)
  Receive Date: 20080115
  Receipt Date: 20080103
  Transmission Date: 20080703
  Serious: Yes (Hospitalization)
  Sender: FDA-Public Use
  Company Number: NO-AMGEN-US257663

PATIENT
  Age: 33 Year
  Sex: Male

DRUGS (2)
  1. ENBREL [Suspect]
     Indication: PSORIATIC ARTHROPATHY
     Route: 058
     Dates: end: 20071217
  2. ENBREL [Suspect]
     Dosage: LYOPHILIZED FORM 50MG PER WEEK
     Route: 058

REACTIONS (3)
  - ANAPHYLACTIC REACTION [None]
  - INJECTION SITE URTICARIA [None]
  - LATEX ALLERGY [None]
